FAERS Safety Report 5470581-8 (Version None)
Quarter: 2007Q3

REPORT INFORMATION
  Report Type: 
  Country: None (occurrence: None)
  Receive Date: 20070928
  Receipt Date: 20070919
  Transmission Date: 20080115
  Serious: Yes (Death)
  Sender: FDA-Public Use
  Company Number: GB-JNJFOC-20070904094

PATIENT
  Age: 33 Year
  Sex: Male

DRUGS (7)
  1. DURAGESIC-100 [Suspect]
     Route: 062
  2. DURAGESIC-100 [Suspect]
     Route: 062
  3. DURAGESIC-100 [Suspect]
     Route: 062
  4. DURAGESIC-100 [Suspect]
     Indication: FACIAL PAIN
     Route: 062
  5. GINSENG [Interacting]
     Indication: DRUG USE FOR UNKNOWN INDICATION
     Dosage: TAKEN IN THE MORNING
     Route: 065
  6. SUDAFED 12 HOUR [Concomitant]
     Route: 065
  7. TILOFYL [Concomitant]
     Route: 062

REACTIONS (3)
  - ARRHYTHMIA [None]
  - DEATH [None]
  - DRUG INTERACTION [None]
